FAERS Safety Report 12619727 (Version 1)
Quarter: 2016Q3

REPORT INFORMATION
  Report Type: Spontaneous
  Country: US (occurrence: US)
  Receive Date: 20160803
  Receipt Date: 20160803
  Transmission Date: 20161109
  Serious: No
  Sender: FDA-Public Use
  Company Number: US-ELI_LILLY_AND_COMPANY-US201608000309

PATIENT
  Sex: Female

DRUGS (8)
  1. HUMALOG [Suspect]
     Active Substance: INSULIN LISPRO
     Dosage: 10 U, BID
     Route: 065
     Dates: start: 20160728
  2. HUMALOG [Suspect]
     Active Substance: INSULIN LISPRO
     Indication: TYPE 2 DIABETES MELLITUS
     Dosage: 10 U, BID
     Route: 065
     Dates: start: 2011
  3. HUMALOG [Suspect]
     Active Substance: INSULIN LISPRO
     Dosage: 25 U, QD
     Route: 065
     Dates: start: 20160717, end: 20160727
  4. HUMALOG [Suspect]
     Active Substance: INSULIN LISPRO
     Dosage: 10 U, BID
     Route: 065
     Dates: start: 20160717, end: 20160727
  5. METFORMIN [Concomitant]
     Active Substance: METFORMIN HYDROCHLORIDE
  6. HUMALOG [Suspect]
     Active Substance: INSULIN LISPRO
     Dosage: 25 U, QD
     Route: 065
     Dates: start: 2011
  7. HUMALOG [Suspect]
     Active Substance: INSULIN LISPRO
     Dosage: 25 U, QD
     Route: 065
     Dates: start: 20160728
  8. LANTUS [Concomitant]
     Active Substance: INSULIN GLARGINE
     Dosage: 110 U, QD

REACTIONS (3)
  - Drug ineffective [Unknown]
  - Blood glucose increased [Recovered/Resolved]
  - Cataract [Unknown]
